FAERS Safety Report 5901799-5 (Version None)
Quarter: 2008Q3

REPORT INFORMATION
  Report Type: 
  Country: None (occurrence: None)
  Receive Date: 20080929
  Receipt Date: 20080923
  Transmission Date: 20090109
  Serious: Yes (Disabling)
  Sender: FDA-Public Use
  Company Number: GB-ASTRAZENECA-2008GB01796

PATIENT
  Age: 77 Year
  Sex: Male

DRUGS (5)
  1. ZOLADEX [Suspect]
     Route: 058
     Dates: start: 20051111
  2. ASPIRIN [Concomitant]
     Indication: HYPERTENSION
     Dosage: 75MG
     Route: 048
     Dates: start: 20000501
  3. BENDROFLUMETHIAZIDE [Concomitant]
     Indication: HYPERTENSION
     Dosage: 2.5MG
     Route: 048
     Dates: start: 20040801
  4. DOXAZOSIN MESYLATE [Concomitant]
     Indication: HYPERTENSION
     Dosage: 6MG
     Route: 048
     Dates: start: 20010101
  5. IRBESARTAN [Concomitant]
     Indication: HYPERTENSION
     Dosage: 30MG
     Route: 048
     Dates: start: 20000101

REACTIONS (2)
  - MUSCULAR WEAKNESS [None]
  - PAIN IN EXTREMITY [None]
